FAERS Safety Report 24247711 (Version 1)
Quarter: 2024Q3

REPORT INFORMATION
  Report Type: Report from Study
  Country: GB (occurrence: None)
  Receive Date: 20240826
  Receipt Date: 20240826
  Transmission Date: 20241017
  Serious: Yes (Other)
  Sender: ASTRAZENECA
  Company Number: 2023A091398

PATIENT
  Age: 64 Year
  Sex: Male
  Weight: 68 kg

DRUGS (5)
  1. DAPAGLIFLOZIN [Suspect]
     Active Substance: DAPAGLIFLOZIN
     Indication: Product used for unknown indication
     Dosage: 10 MILLIGRAM, QD
     Route: 048
     Dates: start: 20230209
  2. TEGSEDI [Suspect]
     Active Substance: INOTERSEN SODIUM
     Indication: Familial hypertriglyceridaemia
  3. TEGSEDI [Suspect]
     Active Substance: INOTERSEN SODIUM
     Indication: Hereditary neuropathic amyloidosis
  4. TEGSEDI [Suspect]
     Active Substance: INOTERSEN SODIUM
     Indication: Familial hypertriglyceridaemia
  5. TEGSEDI [Suspect]
     Active Substance: INOTERSEN SODIUM
     Indication: Hereditary neuropathic amyloidosis

REACTIONS (40)
  - Glomerular filtration rate decreased [Unknown]
  - Abdominal discomfort [Recovered/Resolved]
  - Abdominal pain [Recovered/Resolved]
  - Irritable bowel syndrome [Recovered/Resolved]
  - Weight decreased [Recovered/Resolved]
  - Blood alkaline phosphatase increased [Unknown]
  - Blood bilirubin increased [Unknown]
  - Red cell distribution width increased [Unknown]
  - Haematocrit decreased [Unknown]
  - Haemoglobin decreased [Unknown]
  - Red blood cell count decreased [Unknown]
  - White blood cell count decreased [Unknown]
  - Product availability issue [Recovered/Resolved]
  - Prealbumin decreased [Unknown]
  - Urine protein/creatinine ratio increased [Unknown]
  - Abdominal distension [Recovered/Resolved]
  - Decreased appetite [Recovered/Resolved]
  - Nausea [Recovered/Resolved]
  - Gamma-glutamyltransferase increased [Unknown]
  - Alanine aminotransferase increased [Unknown]
  - Platelet count decreased [Unknown]
  - Renal function test abnormal [Unknown]
  - Back pain [Unknown]
  - Musculoskeletal discomfort [Unknown]
  - Creatinine urine abnormal [Unknown]
  - Protein urine present [Unknown]
  - Mean cell haemoglobin increased [Unknown]
  - Anaemia [Unknown]
  - Dry skin [Recovering/Resolving]
  - Pruritus [Unknown]
  - Lymphocyte morphology abnormal [Unknown]
  - Cytopenia [Unknown]
  - Dizziness [Recovering/Resolving]
  - Balance disorder [Recovering/Resolving]
  - Asthenia [Recovering/Resolving]
  - Gait disturbance [Recovering/Resolving]
  - Bedridden [Recovered/Resolved]
  - Gynaecomastia [Unknown]
  - Nipple pain [Unknown]
  - Labyrinthitis [Unknown]

NARRATIVE: CASE EVENT DATE: 20200101
